FAERS Safety Report 19293026 (Version 1)
Quarter: 2021Q2

REPORT INFORMATION
  Report Type: Spontaneous
  Country: US (occurrence: US)
  Receive Date: 20210524
  Receipt Date: 20210524
  Transmission Date: 20210717
  Serious: No
  Sender: FDA-Public Use
  Company Number: US-TEVA-2021-US-1911567

PATIENT
  Sex: Female

DRUGS (1)
  1. ALPRAZOLAM TEVA [Suspect]
     Active Substance: ALPRAZOLAM
     Indication: ANXIETY
     Dosage: USING MEDICATION FOR THE LAST 15 YEARS
     Route: 065

REACTIONS (3)
  - Drug ineffective [Unknown]
  - Anxiety [Unknown]
  - Product substitution issue [Unknown]

NARRATIVE: CASE EVENT DATE: 202105
